FAERS Safety Report 5242195-6 (Version None)
Quarter: 2007Q1

REPORT INFORMATION
  Report Type: 
  Country: None (occurrence: None)
  Receive Date: 20070213
  Receipt Date: 20070201
  Transmission Date: 20070707
  Serious: No
  Sender: FDA-Public Use
  Company Number: TCI2004A01741

PATIENT
  Age: 81 Year
  Sex: Female

DRUGS (6)
  1. ACTOS [Suspect]
     Indication: DIABETES MELLITUS NON-INSULIN-DEPENDENT
     Dosage: 15 MG (15 MG, 1 IN 1 D) PER ORAL
     Route: 048
     Dates: start: 20040220, end: 20040419
  2. GLYBURIDE [Concomitant]
  3. NEUQUINON (UBIDECARENONE) [Concomitant]
  4. TAGAMET [Concomitant]
  5. EPADEL(ETHYL ICOSAPENTATE) [Concomitant]
  6. PRELAZINE (CILOSTAZOL) [Concomitant]

REACTIONS (3)
  - FACE OEDEMA [None]
  - OEDEMA PERIPHERAL [None]
  - PULMONARY OEDEMA [None]
